FAERS Safety Report 7694256-X (Version None)
Quarter: 2011Q3

REPORT INFORMATION
  Report Type: 
  Country: None (occurrence: None)
  Receive Date: 20110819
  Receipt Date: 20110816
  Transmission Date: 20111222
  Serious: Yes (Other)
  Sender: FDA-Public Use
  Company Number: CA-GLAXOSMITHKLINE-A0941278A

PATIENT
  Sex: Female

DRUGS (2)
  1. VOTRIENT [Suspect]
     Indication: RENAL CANCER METASTATIC
     Dosage: 800MG PER DAY
     Route: 048
     Dates: start: 20101217, end: 20110809
  2. VENTOLIN HFA [Concomitant]

REACTIONS (4)
  - DRY SKIN [None]
  - SKIN ULCER [None]
  - FATIGUE [None]
  - ASTHMA [None]
